FAERS Safety Report 4757347-9 (Version None)
Quarter: 2005Q3

REPORT INFORMATION
  Report Type: 
  Country: None (occurrence: None)
  Receive Date: 20050829
  Receipt Date: 20050815
  Transmission Date: 20060218
  Serious: Yes (Hospitalization, Other)
  Sender: FDA-Public Use
  Company Number: 2005115978

PATIENT
  Age: 40 Year
  Sex: Male

DRUGS (4)
  1. XALATAN [Suspect]
     Indication: GLAUCOMA
  2. COSOPT (DORZOLAMIDE, TIMOLOL MALEATE) [Concomitant]
  3. TIMOPTIC [Concomitant]
  4. ALPRAZOLAM [Concomitant]

REACTIONS (1)
  - PANCREATITIS [None]
